FAERS Safety Report 9012561 (Version 2)
Quarter: 2013Q1

REPORT INFORMATION
  Report Type: Spontaneous
  Country: AU (occurrence: AU)
  Receive Date: 20130114
  Receipt Date: 20130131
  Transmission Date: 20140127
  Serious: Yes (Other)
  Sender: FDA-Public Use
  Company Number: AU-PURDUE-USA-2013-0097611

PATIENT
  Sex: Female

DRUGS (4)
  1. NORSPAN (NDA 21-306) [Suspect]
     Indication: PRODUCT USED FOR UNKNOWN INDICATION
     Dosage: 5 MCG, Q1H
     Route: 062
  2. ACIMAX [Concomitant]
  3. COVERSYL                           /00790702/ [Concomitant]
  4. PANAMAX [Concomitant]

REACTIONS (1)
  - Transient ischaemic attack [Recovered/Resolved]
